FAERS Safety Report 6844808-1 (Version None)
Quarter: 2010Q3

REPORT INFORMATION
  Report Type: 
  Country: None (occurrence: None)
  Receive Date: 20100715
  Receipt Date: 20100701
  Transmission Date: 20110219
  Serious: Yes (Other)
  Sender: FDA-Public Use
  Company Number: PHHY2010KR44469

PATIENT
  Age: 23 Year
  Sex: Female

DRUGS (8)
  1. IMATINIB [Suspect]
     Indication: ACUTE LYMPHOCYTIC LEUKAEMIA
     Route: 065
  2. CYCLOPHOSPHAMIDE [Concomitant]
  3. IRRADIATION [Concomitant]
  4. CYCLOSPORINE [Concomitant]
     Indication: GRAFT VERSUS HOST DISEASE
  5. METHOTREXATE [Concomitant]
     Indication: GRAFT VERSUS HOST DISEASE
  6. CYTARABINE [Concomitant]
     Dosage: UNK
     Dates: start: 20031201
  7. MITOXANTRONE [Concomitant]
     Dosage: UNK
     Dates: start: 20031201
  8. ETOPOSIDE [Concomitant]
     Dosage: UNK
     Dates: start: 20031201

REACTIONS (3)
  - ACUTE LYMPHOCYTIC LEUKAEMIA RECURRENT [None]
  - BONE MARROW TRANSPLANT [None]
  - STEM CELL TRANSPLANT [None]
